FAERS Safety Report 11130815 (Version 1)
Quarter: 2015Q2

REPORT INFORMATION
  Report Type: Spontaneous
  Country: US (occurrence: None)
  Receive Date: 20150520
  Receipt Date: 20150520
  Transmission Date: 20150821
  Serious: Yes (Other)
  Sender: FDA-Public Use
  Company Number: US-H14001-15-00731

PATIENT
  Age: 57 Year
  Sex: Female

DRUGS (1)
  1. DURAMORPH [Suspect]
     Active Substance: MORPHINE SULFATE
     Indication: PAIN
     Route: 037

REACTIONS (2)
  - Device leakage [None]
  - Cerebrospinal fluid leakage [None]

NARRATIVE: CASE EVENT DATE: 201310
